FAERS Safety Report 8485914-8 (Version None)
Quarter: 2012Q3

REPORT INFORMATION
  Report Type: 
  Country: None (occurrence: None)
  Receive Date: 20120703
  Receipt Date: 20120625
  Transmission Date: 20120928
  Serious: Yes (Other)
  Sender: FDA-Public Use
  Company Number: US-ABBOTT-12P-163-0930527-00

PATIENT
  Sex: Female
  Weight: 67.646 kg

DRUGS (15)
  1. PROVERA [Concomitant]
     Indication: HORMONE REPLACEMENT THERAPY
  2. ZYRTEC [Concomitant]
     Indication: PRODUCT USED FOR UNKNOWN INDICATION
  3. METHOTREXATE [Concomitant]
     Indication: RHEUMATOID ARTHRITIS
  4. BYSTOLIC [Concomitant]
     Indication: HYPERTENSION
  5. PROTONIX [Concomitant]
     Indication: PRODUCT USED FOR UNKNOWN INDICATION
  6. VITAMIN D [Concomitant]
     Indication: PRODUCT USED FOR UNKNOWN INDICATION
  7. FOLIC ACID [Concomitant]
     Indication: PRODUCT USED FOR UNKNOWN INDICATION
  8. VITAMIN B-12 [Concomitant]
     Indication: PRODUCT USED FOR UNKNOWN INDICATION
  9. UNKNOWN BLOOD PRESSURE MEDICATION [Suspect]
     Indication: PRODUCT USED FOR UNKNOWN INDICATION
  10. TRIAMTERENE AND HYDROCHLOROTHIAZIDE [Concomitant]
     Indication: HYPERTENSION
  11. ESTRADIOL [Concomitant]
     Indication: HORMONE REPLACEMENT THERAPY
  12. CELEXA [Concomitant]
     Indication: PRODUCT USED FOR UNKNOWN INDICATION
  13. PRAVACHOL [Concomitant]
     Indication: BLOOD CHOLESTEROL INCREASED
  14. MIRAPEX [Concomitant]
     Indication: PRODUCT USED FOR UNKNOWN INDICATION
  15. HUMIRA [Suspect]
     Indication: RHEUMATOID ARTHRITIS
     Dates: start: 20120414, end: 20120430

REACTIONS (4)
  - CHOKING SENSATION [None]
  - RASH ERYTHEMATOUS [None]
  - PHARYNGEAL OEDEMA [None]
  - RASH PRURITIC [None]
